FAERS Safety Report 20520713 (Version 1)
Quarter: 2022Q1

REPORT INFORMATION
  Report Type: Spontaneous
  Country: FR (occurrence: FR)
  Receive Date: 20220225
  Receipt Date: 20220225
  Transmission Date: 20220423
  Serious: Yes (Hospitalization)
  Sender: FDA-Public Use
  Company Number: None

PATIENT
  Age: 87 Year
  Sex: Female
  Weight: 67 kg

DRUGS (4)
  1. KEYTRUDA [Suspect]
     Active Substance: PEMBROLIZUMAB
     Indication: Hodgkin^s disease
     Dosage: 200 MILLIGRAM, CYCLICAL
     Route: 042
     Dates: start: 20200506, end: 20220103
  2. CASIRIVIMAB\IMDEVIMAB [Suspect]
     Active Substance: CASIRIVIMAB\IMDEVIMAB
     Indication: COVID-19 prophylaxis
     Dosage: 600+600 MG
     Route: 042
     Dates: start: 20211210, end: 20211210
  3. BENDAMUSTINE [Suspect]
     Active Substance: BENDAMUSTINE
     Indication: Hodgkin^s disease
     Dosage: 2,5 MG/ML,ONCE
     Route: 042
     Dates: start: 20210712, end: 20220103
  4. COMIRNATY [Suspect]
     Active Substance: TOZINAMERAN
     Indication: COVID-19 immunisation
     Dosage: D1+D2+R1
     Route: 030
     Dates: start: 20210311, end: 20211022

REACTIONS (2)
  - Vaccination failure [Recovered/Resolved]
  - Drug ineffective [Recovered/Resolved]

NARRATIVE: CASE EVENT DATE: 20220131
